FAERS Safety Report 4627404-6 (Version None)
Quarter: 2005Q2

REPORT INFORMATION
  Report Type: 
  Country: None (occurrence: None)
  Receive Date: 20050405
  Receipt Date: 20050321
  Transmission Date: 20051028
  Serious: Yes (Death, Hospitalization, Other)
  Sender: FDA-Public Use
  Company Number: 2005019479

PATIENT
  Age: 70 Year
  Sex: Male

DRUGS (9)
  1. GEODON [Suspect]
     Indication: PSYCHOTIC DISORDER
  2. HYDROCHLOROTHIAZIDE (HYDROCHLORITHIAZIDE0 [Concomitant]
  3. MULTIVITAMINS(ASCORBIC ACID, ERGOCALCIFEROL, FOLIC AICD, NICOTINAMIDE, [Concomitant]
  4. RANITIDINE HYDROCHLORIDE [Concomitant]
  5. DOCUSATE SODIUM (DOCUSATE SODIUM) [Concomitant]
  6. TRAZADONE 9TRAZADONE0 [Concomitant]
  7. LORAZEPAM [Concomitant]
  8. NITROGLYCERIN [Concomitant]
  9. OLMESARTAN MDEOXOMIL (OLMESARTAN MEDOXOMIL) [Concomitant]

REACTIONS (3)
  - CARDIAC ARREST [None]
  - CARDIAC FAILURE CONGESTIVE [None]
  - MYOCARDIAL INFARCTION [None]
